FAERS Safety Report 12368367 (Version 2)
Quarter: 2016Q3

REPORT INFORMATION
  Report Type: Spontaneous
  Country: US (occurrence: US)
  Receive Date: 20160513
  Receipt Date: 20160921
  Transmission Date: 20161109
  Serious: No
  Sender: FDA-Public Use
  Company Number: US-PFIZER INC-2016247182

PATIENT
  Age: 42 Year
  Sex: Female

DRUGS (2)
  1. IBRANCE [Suspect]
     Active Substance: PALBOCICLIB
     Indication: BREAST CANCER METASTATIC
     Dosage: 75 MG, UNK
     Dates: start: 201505
  2. LETROZOLE. [Concomitant]
     Active Substance: LETROZOLE
     Dosage: UNK

REACTIONS (6)
  - Dry mouth [Unknown]
  - White blood cell count decreased [Unknown]
  - Dental caries [Unknown]
  - Alopecia [Unknown]
  - Hypoaesthesia [Unknown]
  - Arthralgia [Unknown]
